FAERS Safety Report 19850346 (Version 20)
Quarter: 2022Q2

REPORT INFORMATION
  Report Type: Report from Study
  Country: CA (occurrence: None)
  Receive Date: 20210917
  Receipt Date: 20220616
  Transmission Date: 20220721
  Serious: Yes (Life-Threatening, Hospitalization)
  Sender: FDA-Public Use
  Company Number: CA-EISAI MEDICAL RESEARCH-EC-2021-097712

PATIENT
  Age: 60 Year
  Sex: Male
  Weight: 81.9 kg

DRUGS (24)
  1. LENVATINIB [Suspect]
     Active Substance: LENVATINIB
     Indication: Renal cell carcinoma
     Route: 048
     Dates: start: 20210526, end: 20210804
  2. BELZUTIFAN [Suspect]
     Active Substance: BELZUTIFAN
     Indication: Renal cell carcinoma
     Route: 048
     Dates: start: 20210526, end: 20210804
  3. BELZUTIFAN [Suspect]
     Active Substance: BELZUTIFAN
     Route: 048
     Dates: start: 20211111
  4. VOLTARENE [Concomitant]
     Dates: start: 199601
  5. CLONAZEPAM [Concomitant]
     Active Substance: CLONAZEPAM
     Dates: start: 200601
  6. PULMICORT TURBUHALER [Concomitant]
     Active Substance: BUDESONIDE
     Dates: start: 201501
  7. OZEMPIC [Concomitant]
     Active Substance: SEMAGLUTIDE
     Route: 058
     Dates: start: 201801
  8. JARDIANCE [Concomitant]
     Active Substance: EMPAGLIFLOZIN
     Dates: start: 201801
  9. METFORMIN [Concomitant]
     Active Substance: METFORMIN HYDROCHLORIDE
     Dates: start: 201801
  10. VITAMIN D [Concomitant]
     Active Substance: VITAMIN D NOS
     Dates: start: 201901
  11. PANTOPRAZOLE [Concomitant]
     Active Substance: PANTOPRAZOLE
     Dates: start: 202005
  12. AMITRIPTYLINE HYDROCHLORIDE [Concomitant]
     Active Substance: AMITRIPTYLINE HYDROCHLORIDE
     Dates: start: 202005
  13. NITROGLYCERIN [Concomitant]
     Active Substance: NITROGLYCERIN
     Dates: start: 202005
  14. ROSUVASTATIN [Concomitant]
     Active Substance: ROSUVASTATIN
     Dates: start: 202005
  15. MELATONIN [Concomitant]
     Active Substance: MELATONIN
     Dates: start: 202005
  16. CARVEDILOL [Concomitant]
     Active Substance: CARVEDILOL
     Dates: start: 202005, end: 20210803
  17. ASPIRIN [Concomitant]
     Active Substance: ASPIRIN
     Dates: start: 202005
  18. PROCHLORAZINE [Concomitant]
     Dates: start: 202005
  19. EZETIMIBE [Concomitant]
     Active Substance: EZETIMIBE
     Dates: start: 202005
  20. LOSARTAN [Concomitant]
     Active Substance: LOSARTAN
     Dates: start: 202005, end: 20210730
  21. INNOHEP [Concomitant]
     Active Substance: TINZAPARIN SODIUM
     Route: 058
     Dates: start: 202009
  22. RUPATADINE FUMARATE [Concomitant]
     Active Substance: RUPATADINE FUMARATE
     Dates: start: 202101
  23. LEVOTHYROXINE SODIUM [Concomitant]
     Active Substance: LEVOTHYROXINE SODIUM
     Dates: start: 20210708
  24. CIPROFLOXACIN [Concomitant]
     Active Substance: CIPROFLOXACIN
     Dates: start: 20210723, end: 20210729

REACTIONS (1)
  - Cardiogenic shock [Recovered/Resolved]

NARRATIVE: CASE EVENT DATE: 20210730
